FAERS Safety Report 20390614 (Version 1)
Quarter: 2022Q1

REPORT INFORMATION
  Report Type: Spontaneous
  Country: GB (occurrence: GB)
  Receive Date: 20220128
  Receipt Date: 20220128
  Transmission Date: 20220423
  Serious: Yes (Other)
  Sender: FDA-Public Use
  Company Number: None

PATIENT
  Age: 85 Year
  Sex: Male
  Weight: 83 kg

DRUGS (11)
  1. ATORVASTATIN [Suspect]
     Active Substance: ATORVASTATIN
     Indication: Product used for unknown indication
     Dosage: FOR SECONDARY PREVENTION OF CARD...
     Dates: start: 20210623
  2. ASPIRIN [Concomitant]
     Active Substance: ASPIRIN
     Dosage: FOR SECONDARY PREVENTION OF CARD...
     Dates: start: 20210623
  3. CLARITHROMYCIN [Concomitant]
     Active Substance: CLARITHROMYCIN
     Dosage: AS DIRECTED BY SPECIALIST
     Dates: start: 20201217
  4. CLOPIDOGREL [Concomitant]
     Active Substance: CLOPIDOGREL BISULFATE
     Dosage: UNTIL JUNE 2022 FOR SECONDARY P...
     Dates: start: 20210702
  5. FUROSEMIDE [Concomitant]
     Active Substance: FUROSEMIDE
     Dosage: EACH MORNING
     Dates: start: 20211025, end: 20211122
  6. NITROGLYCERIN [Concomitant]
     Active Substance: NITROGLYCERIN
     Dosage: ONE TO TWO DOSES TO BE SPRAYED UNDER THE TONGUE...
     Dates: start: 20210623
  7. PANTOPRAZOLE [Concomitant]
     Active Substance: PANTOPRAZOLE
     Dosage: GASTROPROTECTION
     Dates: start: 20210823
  8. PREDNISOLONE [Concomitant]
     Active Substance: PREDNISOLONE
     Dosage: WITH FOOD WHEN NEEDED...
     Dates: start: 20201217
  9. RAMIPRIL [Concomitant]
     Active Substance: RAMIPRIL
     Dosage: FOR SECONDARY PREVENTION C...
     Dates: start: 20210623
  10. ROSUVASTATIN CALCIUM [Concomitant]
     Active Substance: ROSUVASTATIN CALCIUM
     Dates: start: 20220112
  11. SYMBICORT [Concomitant]
     Active Substance: BUDESONIDE\FORMOTEROL FUMARATE DIHYDRATE
     Dates: start: 20201217

REACTIONS (2)
  - Myalgia [Recovering/Resolving]
  - Lethargy [Recovering/Resolving]

NARRATIVE: CASE EVENT DATE: 20220112
